FAERS Safety Report 25772912 (Version 2)
Quarter: 2025Q4

REPORT INFORMATION
  Report Type: Spontaneous
  Country: US (occurrence: US)
  Receive Date: 20250908
  Receipt Date: 20251016
  Transmission Date: 20260118
  Serious: Yes (Other)
  Sender: AUROBINDO
  Company Number: US-MLMSERVICE-20250818-PI616558-00077-5

PATIENT
  Age: 71 Year
  Sex: Female
  Weight: 76.7 kg

DRUGS (8)
  1. CAPECITABINE [Suspect]
     Active Substance: CAPECITABINE
     Indication: Anal squamous cell carcinoma
     Dosage: 3000 MILLIGRAM, ONCE A DAY, 1,000 MG IN MORNING, 2,000 MG IN EVENING
     Route: 048
  2. CAPECITABINE [Suspect]
     Active Substance: CAPECITABINE
     Indication: Anal cancer stage II
  3. CAPECITABINE [Suspect]
     Active Substance: CAPECITABINE
     Indication: Anal papilloma
  4. CAPECITABINE [Suspect]
     Active Substance: CAPECITABINE
     Indication: Papilloma
  5. MITOMYCIN [Concomitant]
     Active Substance: MITOMYCIN
     Indication: Anal squamous cell carcinoma
     Dosage: UNK
     Route: 065
  6. MITOMYCIN [Concomitant]
     Active Substance: MITOMYCIN
     Indication: Anal cancer stage II
  7. MITOMYCIN [Concomitant]
     Active Substance: MITOMYCIN
     Indication: Anal papilloma
  8. MITOMYCIN [Concomitant]
     Active Substance: MITOMYCIN
     Indication: Papilloma

REACTIONS (1)
  - Arteriospasm coronary [Recovered/Resolved]
